FAERS Safety Report 22118217 (Version 1)
Quarter: 2023Q1

REPORT INFORMATION
  Report Type: Report from Study
  Country: AR (occurrence: AR)
  Receive Date: 20230321
  Receipt Date: 20230321
  Transmission Date: 20230417
  Serious: Yes (Other)
  Sender: FDA-Public Use
  Company Number: AR-JNJFOC-20230337351

PATIENT
  Age: 63 Year
  Sex: Female
  Weight: 115 kg

DRUGS (1)
  1. SIMPONI [Suspect]
     Active Substance: GOLIMUMAB
     Indication: Rheumatoid arthritis
     Route: 058
     Dates: start: 20190306

REACTIONS (12)
  - Diverticulum intestinal haemorrhagic [Unknown]
  - Oedematous kidney [Unknown]
  - Diabetes mellitus [Recovering/Resolving]
  - Chest injury [Unknown]
  - Fall [Unknown]
  - Haemorrhoids [Recovering/Resolving]
  - Eye infection [Recovering/Resolving]
  - Gait inability [Unknown]
  - Blood pressure abnormal [Recovering/Resolving]
  - Pain [Unknown]
  - Fatigue [Unknown]
  - Hepatomegaly [Unknown]

NARRATIVE: CASE EVENT DATE: 20200302
